FAERS Safety Report 6179477-X (Version None)
Quarter: 2009Q2

REPORT INFORMATION
  Report Type: 
  Country: None (occurrence: None)
  Receive Date: 20090505
  Receipt Date: 20090420
  Transmission Date: 20091009
  Serious: Yes (Death, Hospitalization)
  Sender: FDA-Public Use
  Company Number: FR-ROCHE-628124

PATIENT
  Age: 19 Year
  Sex: Female

DRUGS (1)
  1. CAPECITABINE [Suspect]
     Indication: ADRENAL GLAND CANCER METASTATIC
     Dosage: 1000 MG DAILY WITH 2 WEEKS ON AND 1 WEEK OFF SCHEDULE
     Route: 048

REACTIONS (6)
  - DIARRHOEA [None]
  - GENERAL PHYSICAL HEALTH DETERIORATION [None]
  - MALIGNANT NEOPLASM PROGRESSION [None]
  - MUCOSAL INFLAMMATION [None]
  - NERVOUS SYSTEM DISORDER [None]
  - PYREXIA [None]
